FAERS Safety Report 16756426 (Version 1)
Quarter: 2019Q3

REPORT INFORMATION
  Report Type: Spontaneous
  Country: GB (occurrence: GB)
  Receive Date: 20190829
  Receipt Date: 20190829
  Transmission Date: 20191005
  Serious: Yes (Life-Threatening, Other)
  Sender: FDA-Public Use
  Company Number: GB-MYLANLABS-2019M1081156

PATIENT
  Age: 54 Year
  Sex: Female
  Weight: 65 kg

DRUGS (11)
  1. INDAPAMIDE. [Suspect]
     Active Substance: INDAPAMIDE
     Indication: PRODUCT USED FOR UNKNOWN INDICATION
     Dosage: 1 DOSAGE FORM, QD, MORNING.
     Dates: start: 20190205
  2. CHLORAMPHENICOL [Concomitant]
     Active Substance: CHLORAMPHENICOL
     Dosage: 4 GTT DROPS, QD
     Dates: start: 20190116, end: 20190117
  3. ONDANSETRON [Concomitant]
     Active Substance: ONDANSETRON
     Dosage: 1 DOSAGE FORM, PRN
     Dates: start: 20190304
  4. RANITIDINE. [Concomitant]
     Active Substance: RANITIDINE
     Dosage: 2 DOSAGE FORM, QD
     Dates: start: 20190304
  5. CASSIA SENNA [Concomitant]
     Active Substance: HERBALS\SENNOSIDES
     Dosage: 2 DOSAGE FORM, PRN
     Dates: start: 20190304
  6. AMITRIPTYLINE HYDROCHLORIDE. [Concomitant]
     Active Substance: AMITRIPTYLINE HYDROCHLORIDE
     Dosage: 2 DOSAGE FORM, QD, NIGHT.
     Dates: start: 20190304
  7. MACROGOL [Concomitant]
     Active Substance: POLYETHYLENE GLYCOLS
     Dosage: 1 DOSAGE FORM, PRN
     Dates: start: 20190304
  8. AMLODIPINE [Concomitant]
     Active Substance: AMLODIPINE BESYLATE
     Dosage: 1 DOSAGE FORM, QD
     Dates: start: 20181213
  9. GABAPENTIN. [Concomitant]
     Active Substance: GABAPENTIN
     Dosage: 6 DOSAGE FORM, QD
     Dates: start: 20190304
  10. OXCARBAZEPINE. [Suspect]
     Active Substance: OXCARBAZEPINE
     Indication: PRODUCT USED FOR UNKNOWN INDICATION
     Dosage: 1200 MILLIGRAM, QD
     Dates: start: 20181224
  11. RAMIPRIL. [Concomitant]
     Active Substance: RAMIPRIL
     Dosage: 1 DOSAGE FORM, QD
     Dates: start: 20190116, end: 20190213

REACTIONS (2)
  - Hyponatraemia [Recovered/Resolved]
  - Drug interaction [Unknown]

NARRATIVE: CASE EVENT DATE: 20190311
